FAERS Safety Report 6931624-5 (Version None)
Quarter: 2010Q3

REPORT INFORMATION
  Report Type: 
  Country: None (occurrence: None)
  Receive Date: 20100813
  Receipt Date: 20100514
  Transmission Date: 20110219
  Serious: No
  Sender: FDA-Public Use
  Company Number: 1000013861

PATIENT
  Sex: Female

DRUGS (2)
  1. SAVELLA [Suspect]
     Dosage: ORAL
     Route: 048
  2. COUMADIN [Suspect]
     Dosage: ORAL
     Route: 048

REACTIONS (3)
  - DRUG INTERACTION [None]
  - INTERNATIONAL NORMALISED RATIO INCREASED [None]
  - PROTHROMBIN TIME PROLONGED [None]
